FAERS Safety Report 20718744 (Version 3)
Quarter: 2022Q2

REPORT INFORMATION
  Report Type: Report from Study
  Country: KR (occurrence: KR)
  Receive Date: 20220418
  Receipt Date: 20220502
  Transmission Date: 20220721
  Serious: Yes (Hospitalization, Other)
  Sender: FDA-Public Use
  Company Number: KR-TAKEDA-2022TUS024688

PATIENT
  Age: 74 Year
  Sex: Female
  Weight: 46.9 kg

DRUGS (33)
  1. VEDOLIZUMAB [Suspect]
     Active Substance: VEDOLIZUMAB
     Indication: Colitis ulcerative
     Dosage: 300 MILLIGRAM, QD
     Route: 042
     Dates: start: 20220211
  2. KANARB [Concomitant]
     Indication: Colitis ulcerative
     Dosage: 60 MILLIGRAM, QD
     Route: 048
     Dates: start: 20200611
  3. AXID [Concomitant]
     Active Substance: NIZATIDINE
     Indication: Colitis ulcerative
     Dosage: 150 MILLIGRAM, BID
     Route: 048
     Dates: start: 20220125
  4. METOCLOPRAMIDE HYDROCHLORIDE [Concomitant]
     Active Substance: METOCLOPRAMIDE HYDROCHLORIDE
     Indication: Colitis ulcerative
     Dosage: 10 MILLIGRAM, QD
     Route: 042
     Dates: start: 20220212, end: 20220212
  5. NORVASC [Concomitant]
     Active Substance: AMLODIPINE BESYLATE
     Indication: Colitis ulcerative
     Dosage: 10 MILLIGRAM
     Route: 048
     Dates: start: 20220209, end: 20220212
  6. KONIL [Concomitant]
     Indication: Colitis ulcerative
     Dosage: 4 MILLIGRAM, QD
     Route: 048
     Dates: start: 20220228
  7. SMOFLIPID [Concomitant]
     Active Substance: FISH OIL\MEDIUM-CHAIN TRIGLYCERIDES\OLIVE OIL\SOYBEAN OIL
     Indication: Hypophagia
     Dosage: 250 MILLILITER, QD
     Route: 042
     Dates: start: 20220228, end: 20220228
  8. VITAMINS [Concomitant]
     Active Substance: VITAMINS
     Indication: Vitamin supplementation
     Dosage: 5 MILLILITER, QD
     Route: 042
     Dates: start: 20220228, end: 20220228
  9. VITAMINS [Concomitant]
     Active Substance: VITAMINS
     Indication: Adverse event
     Dosage: 5 MILLILITER
     Route: 042
     Dates: start: 20220323
  10. VITAMINS [Concomitant]
     Active Substance: VITAMINS
     Dosage: 5 MILLILITER, QD
     Route: 042
     Dates: start: 20220408
  11. FURTMAN [Concomitant]
     Indication: Adverse event
     Dosage: 0.2 MILLILITER, QD
     Route: 042
     Dates: start: 20220318, end: 20220327
  12. FURTMAN [Concomitant]
     Dosage: 0.2 MILLILITER, QD
     Route: 042
     Dates: start: 20220408
  13. COMBIFLEX PERI [Concomitant]
     Indication: Adverse event
     Dosage: 1100 MILLILITER, QD
     Route: 042
     Dates: start: 20220318, end: 20220327
  14. ULTRACET [Concomitant]
     Active Substance: ACETAMINOPHEN\TRAMADOL HYDROCHLORIDE
     Indication: Adverse event
     Dosage: 1 UNK, BID
     Route: 048
     Dates: start: 20020318, end: 20220327
  15. POLYBUTIN S.R [Concomitant]
     Indication: Adverse event
     Dosage: 300 MILLIGRAM, BID
     Route: 048
     Dates: start: 20180320
  16. POLYBUTIN S.R [Concomitant]
     Indication: Product used for unknown indication
     Dosage: 300 MILLIGRAM, BID
     Route: 048
     Dates: start: 20220318, end: 20220324
  17. LOPERAMIDE [Concomitant]
     Active Substance: LOPERAMIDE
     Indication: Adverse event
     Dosage: 2 MILLIGRAM, BID
     Route: 048
     Dates: start: 20220321, end: 20220327
  18. NORZYME [Concomitant]
     Indication: Adverse event
     Dosage: 457.7 MILLIGRAM, QD
     Route: 048
     Dates: start: 20220322, end: 20220322
  19. PHOSTEN [Concomitant]
     Indication: Supplementation therapy
     Dosage: 20 MILLILITER, QD
     Route: 042
     Dates: start: 20220324, end: 20220324
  20. AMINO ACIDS\DEXTROSE\ELECTROLYTES NOS\SOYBEAN OIL\VITAMINS [Concomitant]
     Active Substance: AMINO ACIDS\DEXTROSE\ELECTROLYTES NOS\SOYBEAN OIL\VITAMINS
     Indication: Adverse event
     Dosage: 1085 MILLILITER, QD
     Route: 042
     Dates: start: 20220408
  21. COLAZAL [Concomitant]
     Active Substance: BALSALAZIDE DISODIUM
     Indication: Colitis ulcerative
     Dosage: 750 MILLIGRAM, BID
     Route: 048
     Dates: start: 20180710
  22. PENTASA [Concomitant]
     Active Substance: MESALAMINE
     Indication: Colitis ulcerative
     Dosage: UNK
     Dates: start: 20200609
  23. ALVERIX [Concomitant]
     Indication: Colitis ulcerative
     Dosage: 1 UNK, BID
     Route: 048
     Dates: start: 20200611
  24. .ALPHA.-TOCOPHEROL ACETATE\ALLANTOIN\LIDOCAINE\PREDNISOLONE [Concomitant]
     Active Substance: .ALPHA.-TOCOPHEROL ACETATE\ALLANTOIN\LIDOCAINE\PREDNISOLONE
     Indication: Colitis ulcerative
     Dosage: 2 UNK, QD
     Route: 054
     Dates: start: 20220318, end: 20220318
  25. PREDNISOLONE [Concomitant]
     Active Substance: PREDNISOLONE
     Indication: Colitis ulcerative
     Dosage: 30 MILLIGRAM, QD
     Route: 048
     Dates: start: 20220322, end: 20220328
  26. PREDNISOLONE [Concomitant]
     Active Substance: PREDNISOLONE
     Dosage: 27.5 MILLIGRAM, QD
     Route: 048
     Dates: start: 20220329, end: 20220404
  27. PREDNISOLONE [Concomitant]
     Active Substance: PREDNISOLONE
     Dosage: 25 MILLIGRAM, QD
     Route: 048
     Dates: start: 20220405, end: 20220411
  28. PREDNISOLONE [Concomitant]
     Active Substance: PREDNISOLONE
     Dosage: 22.5 MILLIGRAM, QD
     Route: 048
     Dates: start: 20220412, end: 20220418
  29. ACETAMINOPHEN [Concomitant]
     Active Substance: ACETAMINOPHEN
     Dosage: 650 MILLIGRAM, QD
     Route: 048
     Dates: start: 20220411, end: 20220416
  30. XANAX [Concomitant]
     Active Substance: ALPRAZOLAM
     Indication: Adverse event
     Dosage: 0.25 MILLIGRAM, QD
     Route: 048
     Dates: start: 20220411
  31. XANAX [Concomitant]
     Active Substance: ALPRAZOLAM
     Dosage: 0.125 MILLIGRAM, QD
     Route: 048
     Dates: start: 20220411
  32. ALMAGEL-F [Concomitant]
     Indication: Prophylaxis
     Dosage: 15 MILLILITER, PRN
     Route: 048
     Dates: start: 20220409, end: 20220413
  33. PURINETHOL [Concomitant]
     Active Substance: MERCAPTOPURINE
     Indication: Colitis ulcerative
     Dosage: 25 MILLIGRAM, QD
     Route: 048
     Dates: start: 20220413

REACTIONS (1)
  - Melaena [Recovered/Resolved]

NARRATIVE: CASE EVENT DATE: 20220318
